FAERS Safety Report 16240531 (Version 3)
Quarter: 2020Q1

REPORT INFORMATION
  Report Type: Report from Study
  Country: US (occurrence: US)
  Receive Date: 20190425
  Receipt Date: 20200103
  Transmission Date: 20200409
  Serious: Yes (Life-Threatening, Other)
  Sender: FDA-Public Use
  Company Number: PHHY2019US072611

PATIENT
  Age: 11 Month
  Sex: Male
  Weight: 9 kg

DRUGS (154)
  1. SODIUM CHLORIDE. [Concomitant]
     Active Substance: SODIUM CHLORIDE
     Dosage: 23.2 ML, QD
     Route: 042
     Dates: start: 20190221, end: 20190222
  2. ATIVAN [Concomitant]
     Active Substance: LORAZEPAM
     Indication: PRODUCT USED FOR UNKNOWN INDICATION
     Dosage: 0.18 MG, Q6H (PRN)
     Route: 065
     Dates: start: 20190205, end: 20190220
  3. LEVAQUIN [Concomitant]
     Active Substance: LEVOFLOXACIN
     Indication: PRODUCT USED FOR UNKNOWN INDICATION
     Dosage: 90 MG, BID
     Route: 065
     Dates: start: 20190207, end: 20190208
  4. EUCERIN [Concomitant]
     Active Substance: ENSULIZOLE\EUCERIN\OCTINOXATE\OCTISALATE\TITANIUM DIOXIDE\ZINC OXIDE
     Indication: PRODUCT USED FOR UNKNOWN INDICATION
     Dosage: 1 APPLICATION, PRN
     Route: 065
     Dates: start: 20190205, end: 20190415
  5. ZYLOPRIM [Concomitant]
     Active Substance: ALLOPURINOL
     Indication: PRODUCT USED FOR UNKNOWN INDICATION
     Dosage: 30 MG, TID
     Route: 065
     Dates: start: 20190204, end: 20190224
  6. HEPARIN [Concomitant]
     Active Substance: HEPARIN SODIUM
     Indication: PRODUCT USED FOR UNKNOWN INDICATION
     Dosage: 50 U, PRN
     Route: 065
     Dates: start: 20190204, end: 20190204
  7. HEPARIN [Concomitant]
     Active Substance: HEPARIN SODIUM
     Dosage: 1000 U/ML
     Route: 065
     Dates: start: 20190501
  8. FENTANYL. [Concomitant]
     Active Substance: FENTANYL
     Dosage: 50 UG/ML
     Route: 065
     Dates: start: 20190419
  9. FENTANYL. [Concomitant]
     Active Substance: FENTANYL
     Dosage: 50 UG/ML
     Route: 065
     Dates: start: 20190424
  10. VERSED [Concomitant]
     Active Substance: MIDAZOLAM HYDROCHLORIDE
     Indication: PRODUCT USED FOR UNKNOWN INDICATION
     Dosage: 1 MG/ML
     Route: 065
     Dates: start: 20190419
  11. KETALAR [Concomitant]
     Active Substance: KETAMINE HYDROCHLORIDE
     Dosage: 10 MG/ML
     Route: 065
     Dates: start: 20190419
  12. MORPHINE [Concomitant]
     Active Substance: MORPHINE
     Indication: PRODUCT USED FOR UNKNOWN INDICATION
     Dosage: 0.44 MG, QD
     Route: 065
     Dates: start: 20190225, end: 20190225
  13. KINERET [Concomitant]
     Active Substance: ANAKINRA
     Indication: PRODUCT USED FOR UNKNOWN INDICATION
     Dosage: 17.4 MG, BID (SODIUM CHLORIDE 0.9% 3.48 ML INJECTION)
     Route: 065
     Dates: start: 20190306, end: 20190307
  14. ARA-C [Concomitant]
     Active Substance: CYTARABINE
     Indication: CHEMOTHERAPY
     Dosage: 33 MG, Q12H (SODIUM CHLORIDE 0.9% 25.33 ML)
     Route: 041
     Dates: start: 20190307, end: 20190313
  15. ARA-C [Concomitant]
     Active Substance: CYTARABINE
     Dosage: 33 MG, Q12H (SODIUM CHLORIDE 0.9% 25.33 ML)
     Route: 041
     Dates: start: 20190319, end: 20190327
  16. SIMETHICONE (DIMETHICONE) [Concomitant]
     Active Substance: DIMETHICONE
     Indication: PRODUCT USED FOR UNKNOWN INDICATION
     Dosage: 20MG/0.3ML, QID
     Route: 048
     Dates: start: 20190318, end: 20190328
  17. AMBISOME [Concomitant]
     Active Substance: AMPHOTERICIN B
     Indication: PRODUCT USED FOR UNKNOWN INDICATION
     Dosage: 50 MG IN DEXTROSE 5% 25 ML INFUSION
     Route: 041
     Dates: start: 20190408, end: 20190517
  18. POTASSIUM CHLORIDE. [Concomitant]
     Active Substance: POTASSIUM CHLORIDE
     Dosage: 20 MEQ/ML, QD
     Route: 042
     Dates: start: 20190220, end: 20190221
  19. POTASSIUM CHLORIDE. [Concomitant]
     Active Substance: POTASSIUM CHLORIDE
     Dosage: 0.4 MEQ/ML, QD (CENTRAL LINE ONLY) 2.62 M EQ
     Route: 065
     Dates: start: 20190222
  20. CALCIUM CHLORIDE. [Concomitant]
     Active Substance: CALCIUM CHLORIDE
     Dosage: 87 MG, QD
     Route: 065
     Dates: start: 20190222
  21. CALCIUM CHLORIDE. [Concomitant]
     Active Substance: CALCIUM CHLORIDE
     Dosage: 50 MG/ML IN D5W DILUTION
     Route: 042
  22. ZOVIRAX [Concomitant]
     Active Substance: ACYCLOVIR
     Indication: PRODUCT USED FOR UNKNOWN INDICATION
     Dosage: 43.47 MG, Q8H
     Route: 065
     Dates: start: 20190205, end: 20190205
  23. ZOVIRAX [Concomitant]
     Active Substance: ACYCLOVIR
     Dosage: 43.47 MG, Q8H
     Route: 065
     Dates: start: 20190220
  24. ZOFRAN [Concomitant]
     Active Substance: ONDANSETRON HYDROCHLORIDE
     Dosage: 1.36 MG,Q8HR (PRN) EXTEMP INJ
     Route: 065
     Dates: start: 20190205, end: 20190215
  25. SOLU-CORTEF [Concomitant]
     Active Substance: HYDROCORTISONE SODIUM SUCCINATE
     Indication: PRODUCT USED FOR UNKNOWN INDICATION
     Dosage: 17.5 MG, PRN
     Route: 065
     Dates: start: 20190208, end: 20190209
  26. HEPARIN [Concomitant]
     Active Substance: HEPARIN SODIUM
     Dosage: 10 U/ML
     Route: 065
     Dates: start: 20190424
  27. FLUDARA [Concomitant]
     Active Substance: FLUDARABINE PHOSPHATE
     Indication: CHEMOTHERAPY
     Dosage: 9 MG, QD
     Route: 041
     Dates: start: 20190205, end: 20190207
  28. DYNACIRC [Concomitant]
     Active Substance: ISRADIPINE
     Indication: PRODUCT USED FOR UNKNOWN INDICATION
     Dosage: 0.44 MG, Q8H
     Route: 065
     Dates: start: 20190225, end: 20190301
  29. KINERET [Concomitant]
     Active Substance: ANAKINRA
     Dosage: 17.4 MG, BID (SODIUM CHLORIDE 0.9% 3.48 ML INJECTION)
     Route: 065
     Dates: start: 20190307, end: 20190311
  30. CATHFLO ACTIVASE [Concomitant]
     Active Substance: ALTEPLASE
     Indication: PRODUCT USED FOR UNKNOWN INDICATION
     Dosage: 1 MG/ML, QD, EXTEMP INJ 0.5 MG
     Route: 065
     Dates: start: 20190314, end: 20190314
  31. ROXICODONE [Concomitant]
     Active Substance: OXYCODONE HYDROCHLORIDE
     Indication: PRODUCT USED FOR UNKNOWN INDICATION
     Dosage: 5 MG/5ML, Q6H
     Route: 065
     Dates: start: 20190326, end: 20190329
  32. DEXTROSE. [Concomitant]
     Active Substance: DEXTROSE
     Indication: PRODUCT USED FOR UNKNOWN INDICATION
     Dosage: UNK
     Route: 042
     Dates: start: 20190204, end: 20190205
  33. FAT EMULSION NOS [Concomitant]
     Active Substance: EGG PHOSPHOLIPIDS\SAFFLOWER OIL\SOYBEAN OIL
     Indication: PARENTERAL NUTRITION
     Dosage: UNK
     Route: 041
     Dates: start: 20190221, end: 20190222
  34. SODIUM CHLORIDE. [Concomitant]
     Active Substance: SODIUM CHLORIDE
     Dosage: 100 ML/HR
     Route: 042
     Dates: start: 20190220
  35. SODIUM CHLORIDE. [Concomitant]
     Active Substance: SODIUM CHLORIDE
     Dosage: 6.21 ML, Q8H
     Route: 065
     Dates: start: 20190220
  36. SODIUM CHLORIDE. [Concomitant]
     Active Substance: SODIUM CHLORIDE
     Dosage: 92.8 ML, QD
     Route: 042
     Dates: start: 20190221, end: 20190221
  37. SODIUM CHLORIDE. [Concomitant]
     Active Substance: SODIUM CHLORIDE
     Dosage: 11.6 ML, ONCE (MED LINE, PRN)
     Route: 042
     Dates: start: 20190222, end: 20190222
  38. POTASSIUM CHLORIDE. [Concomitant]
     Active Substance: POTASSIUM CHLORIDE
     Dosage: 0.4 MEQ/ML, QD (CENTRAL LINE ONLY) 2.62 M EQ
     Route: 065
     Dates: start: 20190425, end: 20190430
  39. BENADRYL [Concomitant]
     Active Substance: DIPHENHYDRAMINE HYDROCHLORIDE
     Dosage: 9 MG, QD (PRN)
     Route: 065
     Dates: start: 20190205
  40. BENADRYL [Concomitant]
     Active Substance: DIPHENHYDRAMINE HYDROCHLORIDE
     Dosage: 9.5 MG, PRN
     Route: 065
     Dates: start: 20190424, end: 20190505
  41. OFIRMEV [Concomitant]
     Active Substance: ACETAMINOPHEN
     Indication: PRODUCT USED FOR UNKNOWN INDICATION
     Dosage: 10 MG/ML, Q6H (PRN) EXTEMP INJ
     Route: 065
     Dates: start: 20190220, end: 20190223
  42. TYLENOL [Concomitant]
     Active Substance: ACETAMINOPHEN
     Indication: PRODUCT USED FOR UNKNOWN INDICATION
     Dosage: 120 MG/3.75 ML, Q6H (PRN)
     Route: 048
     Dates: start: 20190204
  43. LMX [Concomitant]
     Active Substance: LIDOCAINE
     Indication: PRODUCT USED FOR UNKNOWN INDICATION
     Dosage: 1 DF, PRN
     Route: 065
     Dates: start: 20190204, end: 20190619
  44. MARCAINE [Concomitant]
     Active Substance: BUPIVACAINE HYDROCHLORIDE
     Indication: PRODUCT USED FOR UNKNOWN INDICATION
     Dosage: 0.5 %
     Route: 065
     Dates: start: 20190311, end: 20190311
  45. MARCAINE [Concomitant]
     Active Substance: BUPIVACAINE HYDROCHLORIDE
     Dosage: 0.5 %, PRN
     Route: 065
     Dates: start: 20190419, end: 20190419
  46. VERSED [Concomitant]
     Active Substance: MIDAZOLAM HYDROCHLORIDE
     Dosage: 1 MG/ML
     Route: 065
     Dates: start: 20190501
  47. XYLOCAINE-MPF [Concomitant]
     Active Substance: LIDOCAINE HYDROCHLORIDE
     Indication: PRODUCT USED FOR UNKNOWN INDICATION
     Dosage: 10 MG/ML
     Route: 065
     Dates: start: 20190414
  48. CYTOSAR [Concomitant]
     Active Substance: CYTARABINE
     Indication: PRODUCT USED FOR UNKNOWN INDICATION
     Dosage: 24 MG IN SODIUM CHLORIDE 0.9% IT INJECTION
     Route: 065
     Dates: start: 20190311, end: 20190311
  49. SYNERA [Concomitant]
     Active Substance: LIDOCAINE\TETRACAINE
     Dosage: 1 MG, PRN
     Route: 065
     Dates: start: 20190311
  50. ZANTAC [Concomitant]
     Active Substance: RANITIDINE HYDROCHLORIDE
     Indication: PRODUCT USED FOR UNKNOWN INDICATION
     Dosage: 19.8 MG, BID
     Route: 065
     Dates: start: 20190314, end: 20190318
  51. VEPESID [Concomitant]
     Active Substance: ETOPOSIDE
     Indication: PRODUCT USED FOR UNKNOWN INDICATION
     Dosage: 32.4 MG, QD
     Route: 065
     Dates: start: 20190319, end: 20190324
  52. CERUBIDINE [Concomitant]
     Active Substance: DAUNORUBICIN HYDROCHLORIDE
     Indication: PRODUCT USED FOR UNKNOWN INDICATION
     Dosage: 16.35 MG, Q48H
     Route: 065
     Dates: start: 20190319, end: 20190323
  53. CANCIDAS [Concomitant]
     Active Substance: CASPOFUNGIN ACETATE
     Indication: PRODUCT USED FOR UNKNOWN INDICATION
     Dosage: 30 MG, QD
     Route: 065
     Dates: start: 20190329, end: 20190329
  54. CANCIDAS [Concomitant]
     Active Substance: CASPOFUNGIN ACETATE
     Dosage: 30 MG, QD
     Route: 065
     Dates: start: 20190330, end: 20190408
  55. DILAUDID [Concomitant]
     Active Substance: HYDROMORPHONE HYDROCHLORIDE
     Indication: PRODUCT USED FOR UNKNOWN INDICATION
     Dosage: 0.05 MG, PRN
     Route: 065
     Dates: start: 20190414, end: 20190414
  56. DEXTROSE. [Concomitant]
     Active Substance: DEXTROSE
     Dosage: 1.74 ML, QD
     Route: 042
     Dates: start: 20190222
  57. SODIUM CHLORIDE. [Concomitant]
     Active Substance: SODIUM CHLORIDE
     Indication: PRODUCT USED FOR UNKNOWN INDICATION
     Dosage: 0.45 %, PRN/ 3.15 ML IV DILUTION
     Route: 042
     Dates: start: 20190204, end: 20190205
  58. SODIUM CHLORIDE. [Concomitant]
     Active Substance: SODIUM CHLORIDE
     Dosage: 12 ML, Q12H
     Route: 065
     Dates: start: 20190220
  59. POTASSIUM PHOSPHATE [Concomitant]
     Active Substance: POTASSIUM PHOSPHATE
     Dosage: 1.392 MMOL, QD (IN SODIUM CHLORIDE 0.9% 11.6 ML)
     Route: 042
     Dates: start: 20190222, end: 20190222
  60. POTASSIUM PHOSPHATE [Concomitant]
     Active Substance: POTASSIUM PHOSPHATE
     Dosage: 3.168 MMOL, QD (IN SODIUM CHLORIDE 0.9% 11.6 ML)
     Route: 042
     Dates: start: 20190331, end: 20190331
  61. CALCIUM CHLORIDE. [Concomitant]
     Active Substance: CALCIUM CHLORIDE
     Dosage: 174 MG, QD
     Route: 065
     Dates: start: 20190219, end: 20190219
  62. ZOVIRAX [Concomitant]
     Active Substance: ACYCLOVIR
     Dosage: 174 MG, BID
     Route: 065
     Dates: start: 20190205, end: 20190211
  63. BENADRYL [Concomitant]
     Active Substance: DIPHENHYDRAMINE HYDROCHLORIDE
     Dosage: 8.5 MG, PRN
     Route: 065
     Dates: start: 20190217, end: 20190219
  64. BENADRYL [Concomitant]
     Active Substance: DIPHENHYDRAMINE HYDROCHLORIDE
     Dosage: 4.5 MG, Q6H (PRN)
     Route: 065
     Dates: start: 20190220, end: 20190220
  65. ATIVAN [Concomitant]
     Active Substance: LORAZEPAM
     Dosage: 0.2 MG, Q6H (PRN)
     Route: 065
     Dates: start: 20190220, end: 20190220
  66. ATIVAN [Concomitant]
     Active Substance: LORAZEPAM
     Dosage: 0.2 MG, Q6H (PRN)
     Route: 065
     Dates: start: 20190313, end: 20190422
  67. TYLENOL [Concomitant]
     Active Substance: ACETAMINOPHEN
     Dosage: 325 MG/10.15 ML, QD
     Route: 048
     Dates: start: 20190211, end: 20190211
  68. TYLENOL [Concomitant]
     Active Substance: ACETAMINOPHEN
     Dosage: 325 MG/3.75 ML, (PRN)
     Route: 048
     Dates: start: 20190217, end: 20190219
  69. ADRENALIN [Concomitant]
     Active Substance: EPINEPHRINE
     Dosage: 0.09 MG, PRN
     Route: 065
     Dates: start: 20190217, end: 20190220
  70. HEPARIN [Concomitant]
     Active Substance: HEPARIN SODIUM
     Dosage: 10 U/ML
     Route: 065
     Dates: start: 20190414
  71. FENTANYL. [Concomitant]
     Active Substance: FENTANYL
     Indication: PRODUCT USED FOR UNKNOWN INDICATION
     Dosage: 50 UG/ML
     Route: 065
     Dates: start: 20190311
  72. DIPRIVAN [Concomitant]
     Active Substance: PROPOFOL
     Dosage: 10 MG/ML
     Route: 065
     Dates: start: 20190501
  73. XYLOCAINE-MPF [Concomitant]
     Active Substance: LIDOCAINE HYDROCHLORIDE
     Dosage: 10 MG/ML
     Route: 065
     Dates: start: 20190424
  74. SOLU-MEDROL [Concomitant]
     Active Substance: METHYLPREDNISOLONE SODIUM SUCCINATE
     Dosage: 3 MG IN SODIUMCHLORIDE 0.9% 0.4 ML INJECTION
     Route: 065
     Dates: start: 20190302, end: 20190302
  75. METHOTREXATE. [Concomitant]
     Active Substance: METHOTREXATE
     Indication: PRODUCT USED FOR UNKNOWN INDICATION
     Dosage: 8 MG, QD
     Route: 065
     Dates: start: 20190311, end: 20190311
  76. RIMSO-50 [Concomitant]
     Active Substance: DIMETHYL SULFOXIDE
     Indication: PRODUCT USED FOR UNKNOWN INDICATION
     Dosage: 1.5 ML, Q6H
     Route: 065
     Dates: start: 20190318, end: 20190401
  77. PEPCID [Concomitant]
     Active Substance: FAMOTIDINE
     Indication: PRODUCT USED FOR UNKNOWN INDICATION
     Dosage: 2.48 MG, QD
     Route: 065
     Dates: start: 20190328, end: 20190403
  78. POLYSPORIN [Concomitant]
     Active Substance: BACITRACIN ZINC\POLYMYXIN B SULFATE
     Indication: PRODUCT USED FOR UNKNOWN INDICATION
     Dosage: 1 APPLICATION (3 TIMES DAILY), PRN
     Route: 065
     Dates: start: 20190216, end: 20190222
  79. VITAMIN K [Concomitant]
     Active Substance: PHYTONADIONE
     Indication: PRODUCT USED FOR UNKNOWN INDICATION
     Dosage: 5 MG, QD
     Route: 065
     Dates: start: 20190221, end: 20190222
  80. VFEND [Concomitant]
     Active Substance: VORICONAZOLE
     Indication: PRODUCT USED FOR UNKNOWN INDICATION
     Dosage: 60 MG, Q12H (SODIUM CHLORIDE 0.9% 12 ML INJECTION)
     Route: 065
     Dates: start: 20190205, end: 20190211
  81. ZOFRAN [Concomitant]
     Active Substance: ONDANSETRON HYDROCHLORIDE
     Dosage: 1.36 MG,Q8HR (PRN) EXTEMP INJ
     Route: 065
     Dates: start: 20190220, end: 20190220
  82. BENADRYL [Concomitant]
     Active Substance: DIPHENHYDRAMINE HYDROCHLORIDE
     Indication: PRODUCT USED FOR UNKNOWN INDICATION
     Dosage: 4.5 MG, Q6H (PRN)
     Route: 065
     Dates: start: 20190205, end: 20190205
  83. BENADRYL [Concomitant]
     Active Substance: DIPHENHYDRAMINE HYDROCHLORIDE
     Dosage: 8.5 MG, PRN
     Route: 065
     Dates: start: 20190208, end: 20190211
  84. MAXIPIME [Concomitant]
     Active Substance: CEFEPIME HYDROCHLORIDE
     Dosage: 440 MG, Q8H
     Route: 065
     Dates: start: 20190211, end: 20190220
  85. SOLU-CORTEF [Concomitant]
     Active Substance: HYDROCORTISONE SODIUM SUCCINATE
     Dosage: 17.5 MG, PRN
     Route: 065
     Dates: start: 20190210, end: 20190211
  86. MESNEX [Concomitant]
     Active Substance: MESNA
     Indication: PRODUCT USED FOR UNKNOWN INDICATION
     Dosage: 63 MG, QD (IN SODIUM CHLORIDE 0.9% 108.08 ML CHEMO INFUSION)
     Route: 041
     Dates: start: 20190205, end: 20190205
  87. FENTANYL. [Concomitant]
     Active Substance: FENTANYL
     Dosage: 50 UG/ML
     Route: 065
     Dates: start: 20190501
  88. FENTANYL. [Concomitant]
     Active Substance: FENTANYL
     Dosage: 50 UG/ML
     Route: 065
     Dates: start: 20190626
  89. MARCAINE [Concomitant]
     Active Substance: BUPIVACAINE HYDROCHLORIDE
     Dosage: UNK
     Route: 065
     Dates: start: 20190501
  90. KETALAR [Concomitant]
     Active Substance: KETAMINE HYDROCHLORIDE
     Indication: PRODUCT USED FOR UNKNOWN INDICATION
     Dosage: 10 MG/ML
     Route: 065
     Dates: start: 20190414
  91. LASIX [Concomitant]
     Active Substance: FUROSEMIDE
     Dosage: 10 MG
     Route: 065
     Dates: start: 20190307, end: 20190307
  92. DECADRON [Concomitant]
     Active Substance: DEXAMETHASONE
     Indication: PRODUCT USED FOR UNKNOWN INDICATION
     Dosage: 2.2 MG, Q12H
     Route: 065
     Dates: start: 20190307, end: 20190313
  93. BLINCYTO [Concomitant]
     Active Substance: BLINATUMOMAB
     Indication: PRODUCT USED FOR UNKNOWN INDICATION
     Dosage: 6.75 UG, QD, 5.5 ML IN SODIUM CHLORIDE 0.9% 240 ML INFUSION
     Route: 065
     Dates: start: 20190427, end: 20190430
  94. ACTEMRA [Concomitant]
     Active Substance: TOCILIZUMAB
     Indication: PRODUCT USED FOR UNKNOWN INDICATION
     Dosage: 100 MG, QD (PRN)
     Route: 042
     Dates: start: 20190202
  95. ACTEMRA [Concomitant]
     Active Substance: TOCILIZUMAB
     Dosage: 100 MG, UNK
     Route: 042
     Dates: start: 20190220, end: 20190321
  96. DEXTROSE. [Concomitant]
     Active Substance: DEXTROSE
     Dosage: 10.88 ML, Q8H
     Route: 042
     Dates: start: 20190208, end: 20190211
  97. DEXTROSE. [Concomitant]
     Active Substance: DEXTROSE
     Dosage: 3.48 ML, QD
     Route: 042
     Dates: start: 20190219, end: 20190219
  98. DEXTROSE. [Concomitant]
     Active Substance: DEXTROSE
     Dosage: UNK
     Route: 042
     Dates: start: 20190220, end: 20190222
  99. SODIUM PHOSPHATE [Concomitant]
     Active Substance: SODIUM PHOSPHATE
     Indication: PRODUCT USED FOR UNKNOWN INDICATION
     Dosage: 2.784 MMOL, QD
     Route: 042
     Dates: start: 20190221, end: 20190222
  100. CALCIUM CHLORIDE. [Concomitant]
     Active Substance: CALCIUM CHLORIDE
     Dosage: DEXTROSE 5% 1.74 ML INJECTION
     Route: 065
     Dates: start: 20190302, end: 20190302
  101. LORAZEPAM. [Concomitant]
     Active Substance: LORAZEPAM
     Indication: PRODUCT USED FOR UNKNOWN INDICATION
     Dosage: 0.5 ML, Q6H (PRN) PREPK
     Route: 048
     Dates: start: 20190220, end: 20190220
  102. TYLENOL [Concomitant]
     Active Substance: ACETAMINOPHEN
     Dosage: 131.2 MG/3.75 ML, Q6H (PRN)
     Route: 048
     Dates: start: 20190219, end: 20190220
  103. ONDANSETRON [Concomitant]
     Active Substance: ONDANSETRON
     Indication: PRODUCT USED FOR UNKNOWN INDICATION
     Dosage: 1.36 MG, Q4H (PRN)
     Route: 065
     Dates: start: 20190205, end: 20190205
  104. ONDANSETRON [Concomitant]
     Active Substance: ONDANSETRON
     Dosage: 2 MG/2.5ML, Q8H (PRN) PREPK
     Route: 048
     Dates: start: 20190215, end: 20190220
  105. HEPARIN [Concomitant]
     Active Substance: HEPARIN SODIUM
     Dosage: 100 U/ML, PRN (500 UNITS)
     Route: 065
     Dates: start: 20190204, end: 20190204
  106. XYLOCAINE WITH EPINEPHRINE [Concomitant]
     Active Substance: EPINEPHRINE BITARTRATE\LIDOCAINE HYDROCHLORIDE
     Indication: PRODUCT USED FOR UNKNOWN INDICATION
     Dosage: UNK
     Route: 065
     Dates: start: 20190626
  107. DIPRIVAN [Concomitant]
     Active Substance: PROPOFOL
     Indication: PRODUCT USED FOR UNKNOWN INDICATION
     Dosage: 10 MG/ML
     Route: 065
     Dates: start: 20190311
  108. VANCOCIN [Concomitant]
     Active Substance: VANCOMYCIN HYDROCHLORIDE
     Indication: PRODUCT USED FOR UNKNOWN INDICATION
     Dosage: 130 MG, Q6H
     Route: 065
     Dates: start: 20190223, end: 20190223
  109. PENTAM [Concomitant]
     Active Substance: PENTAMIDINE ISETHIONATE
     Indication: PRODUCT USED FOR UNKNOWN INDICATION
     Dosage: 36 MG IN DEXTROSE 5% 6 ML INJECTION
     Route: 065
     Dates: start: 20190304, end: 20190305
  110. ZAROXOLYN [Concomitant]
     Active Substance: METOLAZONE
     Indication: PRODUCT USED FOR UNKNOWN INDICATION
     Dosage: 2.5 MG
     Route: 065
     Dates: start: 20190308
  111. KYMRIAH [Suspect]
     Active Substance: TISAGENLECLEUCEL
     Indication: ACUTE LEUKAEMIA
     Dosage: 10 ML, ONCE/SINGLE (2.4E6 KG BODY WEIGHT)
     Route: 041
     Dates: start: 20190211, end: 20190211
  112. DEXTROSE. [Concomitant]
     Active Substance: DEXTROSE
     Dosage: 1.74 ML, QD
     Route: 042
     Dates: start: 20190217, end: 20190217
  113. SODIUM CHLORIDE. [Concomitant]
     Active Substance: SODIUM CHLORIDE
     Dosage: 100 ML, PRN
     Route: 040
     Dates: start: 20190211, end: 20190212
  114. POTASSIUM PHOSPHATE [Concomitant]
     Active Substance: POTASSIUM PHOSPHATE
     Indication: PRODUCT USED FOR UNKNOWN INDICATION
     Dosage: 2.784 MMOL, QD (IN SODIUM CHLORIDE 0.9% 11.6 ML)
     Route: 042
     Dates: start: 20190221, end: 20190221
  115. POTASSIUM PHOSPHATE [Concomitant]
     Active Substance: POTASSIUM PHOSPHATE
     Dosage: 2.784 MMOL, QD (IN SODIUM CHLORIDE 0.9% 11.6 ML)
     Route: 042
     Dates: start: 20190223, end: 20190223
  116. POTASSIUM CHLORIDE. [Concomitant]
     Active Substance: POTASSIUM CHLORIDE
     Indication: PRODUCT USED FOR UNKNOWN INDICATION
     Dosage: 0.4 MEQ/ML, QD (CENTRAL LINE ONLY) 2.62 M EQ
     Route: 065
     Dates: start: 20190213, end: 20190213
  117. CALCIUM CHLORIDE. [Concomitant]
     Active Substance: CALCIUM CHLORIDE
     Indication: PRODUCT USED FOR UNKNOWN INDICATION
     Dosage: 87 MG, QD
     Route: 065
     Dates: start: 20190217, end: 20190217
  118. VFEND [Concomitant]
     Active Substance: VORICONAZOLE
     Dosage: 60 MG, Q12H (SODIUM CHLORIDE 0.9% 12 ML INJECTION)
     Route: 065
     Dates: start: 20190211, end: 20190220
  119. ZOFRAN [Concomitant]
     Active Substance: ONDANSETRON HYDROCHLORIDE
     Indication: PRODUCT USED FOR UNKNOWN INDICATION
     Dosage: 1.36 MG,Q8HR (PRN) EXTEMP INJ
     Route: 065
     Dates: start: 20190204, end: 20190205
  120. ZOFRAN [Concomitant]
     Active Substance: ONDANSETRON HYDROCHLORIDE
     Dosage: 4 MG/2 ML
     Route: 065
     Dates: start: 20190501
  121. BENADRYL [Concomitant]
     Active Substance: DIPHENHYDRAMINE HYDROCHLORIDE
     Dosage: 9 MG, QD (PRN)
     Route: 065
     Dates: start: 20190211, end: 20190211
  122. BENADRYL [Concomitant]
     Active Substance: DIPHENHYDRAMINE HYDROCHLORIDE
     Dosage: 8.5 MG, PRN
     Route: 065
     Dates: start: 20190219, end: 20190219
  123. ATIVAN [Concomitant]
     Active Substance: LORAZEPAM
     Dosage: 1 MG/0.5ML, Q6H
     Route: 048
     Dates: start: 20190205, end: 20190220
  124. TYLENOL [Concomitant]
     Active Substance: ACETAMINOPHEN
     Dosage: 120 MG/3.75 ML, (PRN)
     Route: 048
     Dates: start: 20190208, end: 20190212
  125. ONDANSETRON [Concomitant]
     Active Substance: ONDANSETRON
     Dosage: 2 MG/2.5ML, Q8H (PRN) PREPK
     Route: 048
     Dates: start: 20190308, end: 20190319
  126. VALTREX [Concomitant]
     Active Substance: VALACYCLOVIR HYDROCHLORIDE
     Indication: PRODUCT USED FOR UNKNOWN INDICATION
     Dosage: 175 MG, BID
     Route: 065
     Dates: start: 20190211, end: 20190220
  127. MAXIPIME [Concomitant]
     Active Substance: CEFEPIME HYDROCHLORIDE
     Indication: PRODUCT USED FOR UNKNOWN INDICATION
     Dosage: 435.2 MG, Q8H
     Route: 065
     Dates: start: 20190208, end: 20190211
  128. CYTOXAN [Concomitant]
     Active Substance: CYCLOPHOSPHAMIDE
     Indication: PRODUCT USED FOR UNKNOWN INDICATION
     Dosage: 149 MG, QD
     Route: 041
     Dates: start: 20190205, end: 20190205
  129. VERSED [Concomitant]
     Active Substance: MIDAZOLAM HYDROCHLORIDE
     Dosage: 1 MG/ML
     Route: 065
     Dates: start: 20190424
  130. MERREM [Concomitant]
     Active Substance: MEROPENEM
     Indication: PRODUCT USED FOR UNKNOWN INDICATION
     Dosage: 174 MG (IN SODIUM CHLORIDE 0.9% 8.7 ML IV SOLUTION), Q8H
     Route: 065
     Dates: start: 20190223, end: 20190304
  131. VISIPAQUE [Concomitant]
     Active Substance: IODIXANOL
     Indication: PRODUCT USED FOR UNKNOWN INDICATION
     Dosage: 320 MG IODINE/ML, QD
     Route: 065
     Dates: start: 20190223, end: 20190223
  132. SYNERA [Concomitant]
     Active Substance: LIDOCAINE\TETRACAINE
     Indication: PRODUCT USED FOR UNKNOWN INDICATION
     Dosage: 2 MG, PRN
     Route: 065
     Dates: start: 20190311
  133. RECOTHROM [Concomitant]
     Active Substance: THROMBIN ALFA
     Indication: PRODUCT USED FOR UNKNOWN INDICATION
     Dosage: 1 DF, QD
     Route: 065
     Dates: start: 20190312, end: 20190312
  134. DACOGEN [Concomitant]
     Active Substance: DECITABINE
     Indication: CHEMOTHERAPY
     Dosage: 6.55 MG IN SODIUM CHLORIDE 0.9% 10 ML
     Route: 041
  135. SODIUM CHLORIDE. [Concomitant]
     Active Substance: SODIUM CHLORIDE
     Dosage: UNK
     Route: 040
     Dates: start: 20190208
  136. SODIUM CHLORIDE. [Concomitant]
     Active Substance: SODIUM CHLORIDE
     Dosage: 0.9 %, QD
     Route: 040
     Dates: start: 20190219, end: 20190220
  137. POTASSIUM CHLORIDE. [Concomitant]
     Active Substance: POTASSIUM CHLORIDE
     Dosage: 2.784 MMOL, QD
     Route: 042
     Dates: start: 20190221, end: 20190221
  138. POTASSIUM CHLORIDE. [Concomitant]
     Active Substance: POTASSIUM CHLORIDE
     Dosage: 0.4 MEQ/ML, QD (CENTRAL LINE ONLY) 2.62 M EQ
     Route: 065
     Dates: start: 20190223, end: 20190223
  139. KEPPRA [Concomitant]
     Active Substance: LEVETIRACETAM
     Indication: PRODUCT USED FOR UNKNOWN INDICATION
     Dosage: 90 MG, BID
     Route: 065
     Dates: start: 20190210, end: 20190220
  140. KEPPRA [Concomitant]
     Active Substance: LEVETIRACETAM
     Dosage: 15 MG/ML, Q12H
     Route: 065
     Dates: start: 20190220
  141. ADRENALIN [Concomitant]
     Active Substance: EPINEPHRINE
     Indication: PRODUCT USED FOR UNKNOWN INDICATION
     Dosage: 0.09 MG, PRN
     Route: 065
     Dates: start: 20190205, end: 20190211
  142. VALTREX [Concomitant]
     Active Substance: VALACYCLOVIR HYDROCHLORIDE
     Dosage: 200 MG
     Route: 065
     Dates: start: 20190308, end: 20190328
  143. HEPARIN [Concomitant]
     Active Substance: HEPARIN SODIUM
     Dosage: 30 U, PRN
     Route: 065
     Dates: start: 20190204
  144. OMNIPAQUE [Concomitant]
     Active Substance: IOHEXOL
     Indication: PRODUCT USED FOR UNKNOWN INDICATION
     Dosage: 300 MG IODINE/ML
     Route: 065
     Dates: start: 20190414
  145. MERREM [Concomitant]
     Active Substance: MEROPENEM
     Dosage: 200 MG (IN SODIUM CHLORIDE 0.9% 8.7 ML IV SOLUTION), Q8H
     Route: 065
     Dates: start: 20190404, end: 20190404
  146. VANCOCIN [Concomitant]
     Active Substance: VANCOMYCIN HYDROCHLORIDE
     Dosage: 175 MG, Q6H
     Route: 065
     Dates: start: 20190224, end: 20190225
  147. LASIX [Concomitant]
     Active Substance: FUROSEMIDE
     Indication: PRODUCT USED FOR UNKNOWN INDICATION
     Dosage: 4.4 MG, QD
     Route: 065
     Dates: start: 20190223, end: 20190223
  148. SOLU-MEDROL [Concomitant]
     Active Substance: METHYLPREDNISOLONE SODIUM SUCCINATE
     Indication: PRODUCT USED FOR UNKNOWN INDICATION
     Dosage: 40 MG/ML, QD EXTEMP INJ 8.8 MG, 17.5 MG, 17.6 MG
     Route: 065
     Dates: start: 20190223, end: 20190223
  149. SOLU-MEDROL [Concomitant]
     Active Substance: METHYLPREDNISOLONE SODIUM SUCCINATE
     Dosage: 4 MG IN SODIUMCHLORIDE 0.9% 0.4 ML INJECTION
     Route: 065
     Dates: start: 20190301, end: 20190301
  150. MORPHINE [Concomitant]
     Active Substance: MORPHINE
     Dosage: 0.44 MG, Q6H
     Route: 065
     Dates: start: 20190226, end: 20190227
  151. DIURIL [Concomitant]
     Active Substance: CHLOROTHIAZIDE
     Indication: PRODUCT USED FOR UNKNOWN INDICATION
     Dosage: 25 MG/ML, QD, EXTEMP INJ 24.75 MG
     Route: 065
     Dates: start: 20190308, end: 20190308
  152. LEUCOVORIN. [Concomitant]
     Active Substance: LEUCOVORIN
     Indication: PRODUCT USED FOR UNKNOWN INDICATION
     Dosage: 10 MG/ML, Q6H, EXTEMP INJ 2.2 MG 0.22 ML
     Route: 065
     Dates: start: 20190312, end: 20190312
  153. DEXRAZOXANE. [Concomitant]
     Active Substance: DEXRAZOXANE
     Indication: PRODUCT USED FOR UNKNOWN INDICATION
     Dosage: 164 MG, Q48H
     Route: 065
     Dates: start: 20190319, end: 20190323
  154. MYLOTARG [Concomitant]
     Active Substance: GEMTUZUMAB OZOGAMICIN
     Indication: CHEMOTHERAPY
     Dosage: 1 MG IN SODIUM CHLORIDE 0.9% 10 ML
     Route: 041
     Dates: start: 20190401, end: 20190401

REACTIONS (57)
  - Haemophagocytic lymphohistiocytosis [Unknown]
  - Blood lactate dehydrogenase increased [Unknown]
  - Prothrombin time prolonged [Not Recovered/Not Resolved]
  - Blood calcium decreased [Unknown]
  - Pleural effusion [Recovered/Resolved]
  - Neutrophil count decreased [Not Recovered/Not Resolved]
  - Cytokine release syndrome [Recovered/Resolved]
  - Capillary disorder [Not Recovered/Not Resolved]
  - Disseminated intravascular coagulation [Unknown]
  - Blood urea decreased [Recovered/Resolved]
  - pH body fluid abnormal [Unknown]
  - N-terminal prohormone brain natriuretic peptide increased [Unknown]
  - Blood magnesium increased [Recovered/Resolved]
  - Blood phosphorus decreased [Unknown]
  - Tachypnoea [Recovering/Resolving]
  - Aspartate aminotransferase increased [Not Recovered/Not Resolved]
  - Blood fibrinogen decreased [Recovering/Resolving]
  - Serum ferritin increased [Unknown]
  - Anion gap increased [Recovered/Resolved]
  - Blood creatinine decreased [Unknown]
  - Reticulocyte count decreased [Unknown]
  - Out of specification test results [Unknown]
  - White blood cell count decreased [Not Recovered/Not Resolved]
  - Activated partial thromboplastin time prolonged [Unknown]
  - Hypertension [Recovered/Resolved]
  - Tachycardia [Recovering/Resolving]
  - Coagulopathy [Recovered/Resolved]
  - Haematemesis [Recovered/Resolved]
  - Carbon dioxide decreased [Recovered/Resolved]
  - Haematocrit decreased [Unknown]
  - Blood triglycerides increased [Unknown]
  - Procalcitonin increased [Unknown]
  - Blood albumin decreased [Unknown]
  - Red blood cell count decreased [Unknown]
  - Pneumatosis [Unknown]
  - Hydrocele [Recovered/Resolved]
  - Lymphocyte count decreased [Unknown]
  - Pneumatosis intestinalis [Recovering/Resolving]
  - Pyrexia [Recovered/Resolved]
  - Alanine aminotransferase increased [Not Recovered/Not Resolved]
  - Pancreatitis [Recovered/Resolved]
  - Ammonia decreased [Unknown]
  - Red cell distribution width increased [Not Recovered/Not Resolved]
  - International normalised ratio increased [Not Recovered/Not Resolved]
  - Blood potassium decreased [Recovered/Resolved]
  - Platelet count decreased [Not Recovered/Not Resolved]
  - Abdominal infection [Recovered/Resolved]
  - Blood chloride increased [Recovered/Resolved]
  - Blood sodium decreased [Recovered/Resolved]
  - Rash [Recovered/Resolved]
  - Hypoxia [Recovered/Resolved]
  - Monocyte count increased [Unknown]
  - Decreased appetite [Not Recovered/Not Resolved]
  - Blast cell count increased [Unknown]
  - Protein total decreased [Unknown]
  - Anaemia [Not Recovered/Not Resolved]
  - Blood glucose increased [Unknown]

NARRATIVE: CASE EVENT DATE: 20190212
